FAERS Safety Report 9400961 (Version 8)
Quarter: 2015Q1

REPORT INFORMATION
  Report Type: Spontaneous
  Country: US (occurrence: US)
  Receive Date: 20130715
  Receipt Date: 20150130
  Transmission Date: 20150721
  Serious: Yes (Hospitalization, Other)
  Sender: FDA-Public Use
  Company Number: US-GLAXOSMITHKLINE-A1033117A

PATIENT
  Sex: Male

DRUGS (2)
  1. ROSIGLITAZONE [Suspect]
     Active Substance: ROSIGLITAZONE
     Indication: DIABETES MELLITUS
     Dosage: 2 MG, UNK
     Dates: start: 20100330, end: 20100401
  2. AVANDIA [Suspect]
     Active Substance: ROSIGLITAZONE MALEATE
     Indication: DIABETES MELLITUS
     Dosage: 8 MG, QD
     Route: 048
     Dates: start: 200704, end: 20130821

REACTIONS (5)
  - Myocardial infarction [Unknown]
  - Coronary artery disease [Unknown]
  - Angina unstable [Unknown]
  - Coronary bypass thrombosis [Unknown]
  - Myocardial ischaemia [Unknown]
